FAERS Safety Report 12636493 (Version 1)
Quarter: 2016Q3

REPORT INFORMATION
  Report Type: Spontaneous
  Country: US (occurrence: US)
  Receive Date: 20160809
  Receipt Date: 20160809
  Transmission Date: 20161109
  Serious: No
  Sender: FDA-Public Use
  Company Number: US-009507513-1607USA013085

PATIENT
  Sex: Female

DRUGS (1)
  1. BELSOMRA [Suspect]
     Active Substance: SUVOREXANT
     Indication: INSOMNIA
     Dosage: CUT THE 10 MG OF BELSOMRA IN HALF AND TOOK 5 MG
     Route: 048

REACTIONS (2)
  - Wrong technique in product usage process [Unknown]
  - Memory impairment [Recovered/Resolved]
